FAERS Safety Report 8258649-4 (Version None)
Quarter: 2012Q2

REPORT INFORMATION
  Report Type: 
  Country: None (occurrence: None)
  Receive Date: 20120404
  Receipt Date: 20120328
  Transmission Date: 20120825
  Serious: Yes (Other)
  Sender: FDA-Public Use
  Company Number: JP-PFIZER INC-2012078788

PATIENT
  Age: 68 Year
  Sex: Female
  Weight: 40 kg

DRUGS (2)
  1. ZITHROMAX [Suspect]
     Indication: PERTUSSIS
  2. ZITHROMAX [Suspect]
     Indication: PNEUMONIA
     Dosage: 500 MG A DAY
     Route: 048
     Dates: start: 20120305, end: 20120307

REACTIONS (2)
  - DRUG INEFFECTIVE [None]
  - PNEUMONIA [None]
